FAERS Safety Report 22672016 (Version 2)
Quarter: 2024Q4

REPORT INFORMATION
  Report Type: Spontaneous
  Country: CA (occurrence: CA)
  Receive Date: 20230705
  Receipt Date: 20241014
  Transmission Date: 20250114
  Serious: Yes (Hospitalization, Other)
  Sender: ALEXION PHARMACEUTICALS
  Company Number: 2023A151283

PATIENT
  Age: 54 Year

DRUGS (44)
  1. QUETIAPINE FUMARATE [Suspect]
     Active Substance: QUETIAPINE FUMARATE
     Indication: Depression
  2. QUETIAPINE FUMARATE [Suspect]
     Active Substance: QUETIAPINE FUMARATE
     Indication: Bipolar disorder
  3. QUETIAPINE FUMARATE [Suspect]
     Active Substance: QUETIAPINE FUMARATE
  4. QUETIAPINE FUMARATE [Suspect]
     Active Substance: QUETIAPINE FUMARATE
  5. ATAZANAVIR SULFATE [Suspect]
     Active Substance: ATAZANAVIR SULFATE
     Indication: HIV infection
  6. ATAZANAVIR SULFATE [Suspect]
     Active Substance: ATAZANAVIR SULFATE
     Route: 065
  7. BUPROPION [Suspect]
     Active Substance: BUPROPION
     Indication: Depression
  8. BUPROPION [Suspect]
     Active Substance: BUPROPION
     Route: 065
  9. CITALOPRAM HYDROBROMIDE [Suspect]
     Active Substance: CITALOPRAM HYDROBROMIDE
     Indication: Psychotic disorder
  10. CITALOPRAM HYDROBROMIDE [Suspect]
     Active Substance: CITALOPRAM HYDROBROMIDE
     Route: 065
  11. CLONAZEPAM [Suspect]
     Active Substance: CLONAZEPAM
     Indication: Depression
     Dosage: UNK
     Route: 065
  12. CLONAZEPAM [Suspect]
     Active Substance: CLONAZEPAM
     Indication: Bipolar disorder
     Dosage: UNK
  13. CLONAZEPAM [Suspect]
     Active Substance: CLONAZEPAM
     Dosage: UNK
     Route: 065
  14. CLONAZEPAM [Suspect]
     Active Substance: CLONAZEPAM
     Dosage: UNK
  15. KALETRA [Suspect]
     Active Substance: LOPINAVIR\RITONAVIR
     Indication: HIV infection
  16. KALETRA [Suspect]
     Active Substance: LOPINAVIR\RITONAVIR
     Route: 065
  17. LAMIVUDINE [Suspect]
     Active Substance: LAMIVUDINE
     Indication: HIV infection
  18. LAMIVUDINE [Suspect]
     Active Substance: LAMIVUDINE
     Route: 065
  19. RALTEGRAVIR POTASSIUM [Suspect]
     Active Substance: RALTEGRAVIR POTASSIUM
     Indication: HIV infection
     Dosage: 800 MILLIGRAM, QD
  20. RALTEGRAVIR POTASSIUM [Suspect]
     Active Substance: RALTEGRAVIR POTASSIUM
     Dosage: 800 MILLIGRAM, QD
     Route: 065
  21. RISPERIDONE [Suspect]
     Active Substance: RISPERIDONE
     Indication: Depression
  22. RISPERIDONE [Suspect]
     Active Substance: RISPERIDONE
     Route: 065
  23. RITONAVIR [Suspect]
     Active Substance: RITONAVIR
     Indication: Depression
  24. RITONAVIR [Suspect]
     Active Substance: RITONAVIR
     Route: 065
  25. SERTRALINE HYDROCHLORIDE [Suspect]
     Active Substance: SERTRALINE HYDROCHLORIDE
     Indication: Bipolar disorder
  26. SERTRALINE HYDROCHLORIDE [Suspect]
     Active Substance: SERTRALINE HYDROCHLORIDE
     Route: 065
  27. SUSTIVA [Suspect]
     Active Substance: EFAVIRENZ
     Indication: HIV infection
  28. SUSTIVA [Suspect]
     Active Substance: EFAVIRENZ
     Route: 065
  29. ENFUVIRTIDE [Suspect]
     Active Substance: ENFUVIRTIDE
     Indication: HIV infection
  30. ENFUVIRTIDE [Suspect]
     Active Substance: ENFUVIRTIDE
     Route: 065
  31. VALPROATE SODIUM [Suspect]
     Active Substance: VALPROATE SODIUM
     Indication: Bipolar disorder
  32. VALPROATE SODIUM [Suspect]
     Active Substance: VALPROATE SODIUM
     Route: 065
  33. VIREAD [Suspect]
     Active Substance: TENOFOVIR DISOPROXIL FUMARATE
     Indication: Product used for unknown indication
     Route: 065
  34. VIREAD [Suspect]
     Active Substance: TENOFOVIR DISOPROXIL FUMARATE
  35. VIREAD [Suspect]
     Active Substance: TENOFOVIR DISOPROXIL FUMARATE
     Route: 065
  36. VIREAD [Suspect]
     Active Substance: TENOFOVIR DISOPROXIL FUMARATE
  37. ZOPICLONE [Suspect]
     Active Substance: ZOPICLONE
     Indication: Bipolar disorder
     Route: 065
  38. ZOPICLONE [Suspect]
     Active Substance: ZOPICLONE
  39. ZOPICLONE [Suspect]
     Active Substance: ZOPICLONE
     Route: 065
  40. ZOPICLONE [Suspect]
     Active Substance: ZOPICLONE
  41. EMTRIVA [Concomitant]
     Active Substance: EMTRICITABINE
     Indication: Product used for unknown indication
     Route: 065
  42. EMTRIVA [Concomitant]
     Active Substance: EMTRICITABINE
  43. EMTRIVA [Concomitant]
     Active Substance: EMTRICITABINE
     Route: 065
  44. EMTRIVA [Concomitant]
     Active Substance: EMTRICITABINE

REACTIONS (10)
  - Anxiety [Unknown]
  - Depression suicidal [Unknown]
  - Depressive symptom [Unknown]
  - Paranoia [Unknown]
  - Psychiatric decompensation [Unknown]
  - Psychomotor skills impaired [Unknown]
  - Psychotic disorder [Unknown]
  - Suicidal ideation [Unknown]
  - Tearfulness [Unknown]
  - Product use in unapproved indication [Unknown]
